FAERS Safety Report 7957602-5 (Version None)
Quarter: 2011Q4

REPORT INFORMATION
  Report Type: 
  Country: None (occurrence: None)
  Receive Date: 20111205
  Receipt Date: 20111125
  Transmission Date: 20120403
  Serious: Yes (Hospitalization)
  Sender: FDA-Public Use
  Company Number: RO-NOVOPROD-340306

PATIENT

DRUGS (3)
  1. LEVEMIR [Suspect]
     Indication: TYPE 1 DIABETES MELLITUS
     Dosage: 32 U, QD
     Route: 058
     Dates: start: 20070101
  2. NOVORAPID [Concomitant]
     Indication: TYPE 1 DIABETES MELLITUS
     Dosage: 54 U, QD
     Route: 058
     Dates: start: 20070101
  3. NOVORAPID [Concomitant]
     Dosage: 900 IU, QD
     Route: 058
     Dates: start: 20111123

REACTIONS (3)
  - BORDERLINE PERSONALITY DISORDER [None]
  - OVERDOSE [None]
  - NO ADVERSE EVENT [None]
